FAERS Safety Report 5709116-0 (Version None)
Quarter: 2008Q2

REPORT INFORMATION
  Report Type: 
  Country: None (occurrence: None)
  Receive Date: 20080416
  Receipt Date: 20080416
  Transmission Date: 20081010
  Serious: No
  Sender: FDA-Public Use
  Company Number: None

PATIENT
  Sex: Male

DRUGS (4)
  1. GADOLINIUM - GADODAMIDE- [Suspect]
     Indication: EXTRADURAL ABSCESS
     Dosage: 20 CC X1 IV BOLUS  ONE TIME
     Route: 040
     Dates: start: 20060401, end: 20060401
  2. GADOLINIUM - GADODAMIDE- [Suspect]
     Indication: PAIN IN EXTREMITY
     Dosage: 20 CC X1 IV BOLUS  ONE TIME
     Route: 040
     Dates: start: 20060401, end: 20060401
  3. GADOLINIUM - GADODAMIDE- [Suspect]
     Indication: EXTRADURAL ABSCESS
     Dosage: 20 CC X1 IV BOLUS  ONE TIME
     Route: 040
     Dates: start: 20060501, end: 20060501
  4. GADOLINIUM - GADODAMIDE- [Suspect]
     Indication: PAIN IN EXTREMITY
     Dosage: 20 CC X1 IV BOLUS  ONE TIME
     Route: 040
     Dates: start: 20060501, end: 20060501

REACTIONS (1)
  - NEPHROGENIC SYSTEMIC FIBROSIS [None]
